FAERS Safety Report 9258780 (Version 3)
Quarter: 2013Q2

REPORT INFORMATION
  Report Type: Spontaneous
  Country: JP (occurrence: JP)
  Receive Date: 20130426
  Receipt Date: 20130531
  Transmission Date: 20140414
  Serious: Yes (Other)
  Sender: FDA-Public Use
  Company Number: JP-BRISTOL-MYERS SQUIBB COMPANY-18827600

PATIENT
  Age: 64 Year
  Sex: Male

DRUGS (3)
  1. ABILIFY DISCMELT TABS [Suspect]
     Indication: BIPOLAR DISORDER
     Dosage: FORMULATION-ABILIFY ORODISPERSABLE TAB
     Route: 048
     Dates: start: 20120721
  2. LIMAS [Suspect]
     Dosage: TAB
     Route: 048
     Dates: start: 20120709
  3. DEPAKENE [Suspect]
     Route: 048
     Dates: start: 20120709

REACTIONS (1)
  - Waldenstrom^s macroglobulinaemia [Not Recovered/Not Resolved]
